FAERS Safety Report 5137650-3 (Version None)
Quarter: 2006Q4

REPORT INFORMATION
  Report Type: 
  Country: None (occurrence: None)
  Receive Date: 20061030
  Receipt Date: 20051209
  Transmission Date: 20070319
  Serious: No
  Sender: FDA-Public Use
  Company Number: US-GLAXOSMITHKLINE-A0585245A

PATIENT
  Age: 57 Year
  Sex: Male
  Weight: 95.7 kg

DRUGS (7)
  1. ADVAIR HFA [Suspect]
     Indication: ASTHMA
     Dosage: 1PUFF TWICE PER DAY
     Route: 055
  2. PREDNISONE TAB [Concomitant]
     Route: 048
  3. SINGULAIR [Concomitant]
     Route: 048
  4. ALBUTEROL [Concomitant]
     Route: 055
  5. CRESTOR [Concomitant]
     Route: 048
  6. PREVACID [Concomitant]
     Route: 048
  7. INSULIN [Concomitant]
     Route: 042

REACTIONS (1)
  - NOCTURIA [None]
